FAERS Safety Report 10202464 (Version 1)
Quarter: 2014Q2

REPORT INFORMATION
  Report Type: Spontaneous
  Country: GB (occurrence: GB)
  Receive Date: 20140528
  Receipt Date: 20140528
  Transmission Date: 20141212
  Serious: Yes (Other)
  Sender: FDA-Public Use
  Company Number: GB-TEVA-482502ISR

PATIENT
  Age: 58 Year
  Sex: Female

DRUGS (1)
  1. ERYTHROMYCIN [Suspect]
     Indication: SINUSITIS
     Dosage: 1000 MILLIGRAM DAILY;
     Route: 048
     Dates: start: 20140430, end: 20140502

REACTIONS (9)
  - Rash [Recovering/Resolving]
  - Urticaria [Recovering/Resolving]
  - Eye pain [Recovering/Resolving]
  - Ocular hyperaemia [Recovering/Resolving]
  - Eye pruritus [Recovering/Resolving]
  - Nasal congestion [Recovering/Resolving]
  - Reaction to colouring [Unknown]
  - Product substitution issue [Unknown]
  - Polydipsia [Unknown]
